FAERS Safety Report 14739754 (Version 1)
Quarter: 2018Q2

REPORT INFORMATION
  Report Type: Spontaneous
  Country: FR (occurrence: FR)
  Receive Date: 20180410
  Receipt Date: 20180410
  Transmission Date: 20180711
  Serious: Yes (Other)
  Sender: FDA-Public Use
  Company Number: FR-MERCK KGAA-2045434

PATIENT
  Age: 70 Year
  Sex: Male

DRUGS (1)
  1. NOVOTHYROX [Suspect]
     Active Substance: LEVOTHYROXINE SODIUM
     Indication: PRODUCT USED FOR UNKNOWN INDICATION
     Dates: start: 20170515

REACTIONS (15)
  - Depression [None]
  - Hyperthyroidism [None]
  - Tachycardia [Not Recovered/Not Resolved]
  - Irritability [None]
  - Muscular weakness [None]
  - Weight increased [Not Recovered/Not Resolved]
  - Personal relationship issue [None]
  - Dizziness [Not Recovered/Not Resolved]
  - Decreased interest [None]
  - Dyspnoea [None]
  - Loss of personal independence in daily activities [None]
  - Ill-defined disorder [None]
  - Asthenia [None]
  - Fatigue [Not Recovered/Not Resolved]
  - Insomnia [None]

NARRATIVE: CASE EVENT DATE: 2017
